FAERS Safety Report 18529045 (Version 1)
Quarter: 2020Q4

REPORT INFORMATION
  Report Type: Spontaneous
  Country: US (occurrence: US)
  Receive Date: 20201120
  Receipt Date: 20201120
  Transmission Date: 20210114
  Serious: No
  Sender: FDA-Public Use
  Company Number: US-TAKEDA-2020TUS047283

PATIENT
  Sex: Female
  Weight: 52.61 kg

DRUGS (16)
  1. EPINEPHRINE. [Concomitant]
     Active Substance: EPINEPHRINE
  2. ETHAMBUTOL [Concomitant]
     Active Substance: ETHAMBUTOL HYDROCHLORIDE
  3. NORMAL SALINE [Concomitant]
     Active Substance: SODIUM CHLORIDE
  4. MELATONIN [Concomitant]
     Active Substance: MELATONIN
  5. DIGOXIN. [Concomitant]
     Active Substance: DIGOXIN
  6. CLARITHROMYCIN. [Concomitant]
     Active Substance: CLARITHROMYCIN
  7. VITAMIN D3 [Concomitant]
     Active Substance: CHOLECALCIFEROL
  8. ACETAMINOPHEN. [Concomitant]
     Active Substance: ACETAMINOPHEN
  9. WARFARIN [Concomitant]
     Active Substance: WARFARIN
  10. RIFAMPIN. [Concomitant]
     Active Substance: RIFAMPIN
  11. VITAMIN B12 [Concomitant]
     Active Substance: CYANOCOBALAMIN
  12. HYQVIA [Suspect]
     Active Substance: HUMAN IMMUNOGLOBULIN G\HYALURONIDASE RECOMBINANT HUMAN
     Indication: IMMUNODEFICIENCY
     Dosage: 30 GRAM, Q4WEEKS
     Route: 058
     Dates: start: 20170320
  13. DIPHENHYDRAMINE. [Concomitant]
     Active Substance: DIPHENHYDRAMINE
  14. LIDOCAINE. [Concomitant]
     Active Substance: LIDOCAINE
  15. AZITHROMYCIN ANHYDROUS. [Concomitant]
     Active Substance: AZITHROMYCIN ANHYDROUS
  16. VITAMIN C ACID [Concomitant]
     Active Substance: ASCORBIC ACID

REACTIONS (3)
  - Injection site reaction [Unknown]
  - Pain in extremity [Unknown]
  - Pruritus [Unknown]
